FAERS Safety Report 8439041 (Version 2)
Quarter: 2013Q2

REPORT INFORMATION
  Report Type: Spontaneous
  Country: US (occurrence: None)
  Receive Date: 20120104
  Receipt Date: 20120508
  Transmission Date: 20140414
  Serious: Yes (Other)
  Sender: FDA-Public Use
  Company Number: 2011HGS-002835

PATIENT
  Age: 41 Year
  Sex: Female
  Weight: 92.99 kg

DRUGS (14)
  1. BENLYSTA [Suspect]
     Indication: SYSTEMIC LUPUS ERYTHEMATOSUS
     Dosage: 1 IN 8 WK, INTRAVENOUS DRIP
     Route: 041
     Dates: start: 20111118
  2. NEXIUM(ESOMEPRAZOLE MAGNESIUM)(ESOMEPRAZOLE [Concomitant]
  3. TOPIRAMATE [Concomitant]
  4. VENLAFAXINE [Concomitant]
  5. SEROQUEL XR(QUETIAPINE FUMARATE)(QUETIAPINE FUMARATE) [Concomitant]
  6. PLAQUENIL (HYDROXYCHLOROQUINE SULFATE)(HYDROXYCHLOROQUINE SULFATE) [Concomitant]
  7. METHOTREXATE [Concomitant]
  8. CLONAZEPAM [Concomitant]
  9. PREDNISONE(PREDNISONE) (PREDNISONE) [Concomitant]
  10. FOLIC ACID [Concomitant]
  11. SYNTHROID(LEVOTHYROXINE SODIUM)(LEVOTHYROXINE SODIUM [Concomitant]
  12. VITAMIN D3(COLECALCIFEROL)(COLECALCIFEROL) [Concomitant]
  13. PROAIR(SALBUTAMOL SULFATE)(SALBUTAMOL SULFATE) [Concomitant]
  14. DULERA(DULERA)(FORMOTEROL FUMARATE, MOMETASONE FUROATE) [Concomitant]

REACTIONS (2)
  - UPPER RESPIRATORY TRACT INFECTION [None]
  - Nasopharyngitis [None]
